FAERS Safety Report 15685127 (Version 1)
Quarter: 2018Q4

REPORT INFORMATION
  Report Type: Spontaneous
  Country: DE (occurrence: DE)
  Receive Date: 20181204
  Receipt Date: 20181204
  Transmission Date: 20190205
  Serious: Yes (Other)
  Sender: FDA-Public Use
  Company Number: DE-MYLANLABS-2018M1088040

PATIENT
  Age: 46 Year
  Sex: Male

DRUGS (3)
  1. METHOTREXATE. [Suspect]
     Active Substance: METHOTREXATE
     Indication: LANGERHANS^ CELL HISTIOCYTOSIS
     Route: 065
  2. DESMOPRESSIN [Concomitant]
     Active Substance: DESMOPRESSIN
     Indication: DIABETES INSIPIDUS
     Dosage: TOTAL DOSE OF 0.4MG DIVIDED INTO THREE DOSES PER DAY (PRIOR TO TRAMETINIB INITIATION)
     Route: 065
  3. DESMOPRESSIN [Concomitant]
     Active Substance: DESMOPRESSIN
     Dosage: DOSE COULD BE REDUCED WHILE ON TREATMENT WITH TRAMETINIB
     Route: 065

REACTIONS (2)
  - Drug ineffective [Unknown]
  - Hepatotoxicity [Unknown]
